FAERS Safety Report 10658674 (Version 1)
Quarter: 2014Q4

REPORT INFORMATION
  Report Type: Spontaneous
  Country: US (occurrence: None)
  Receive Date: 20141205
  Receipt Date: 20141205
  Transmission Date: 20150529
  Serious: Yes (Disabling)
  Sender: FDA-Public Use
  Company Number: USA-2014105011

PATIENT
  Age: 62 Year
  Sex: Male
  Weight: 106.14 kg

DRUGS (13)
  1. CYCLOPHOSPHAMIDE (CYCLOPHOSPHAMIDE) [Concomitant]
     Active Substance: CYCLOPHOSPHAMIDE
  2. SENNA (SENNOSIDE A+B) [Concomitant]
  3. MINOXIDIL (MINOXIDIL) [Concomitant]
     Active Substance: MINOXIDIL
  4. BYSTOLIC [Concomitant]
     Active Substance: NEBIVOLOL HYDROCHLORIDE
  5. CALCIUM (CALCIUM) [Concomitant]
     Active Substance: CALCIUM
  6. ASPIRIN (ACETYLSALICYLIC ACID) [Concomitant]
     Active Substance: ASPIRIN
  7. MULTIVITAMINS (ERGOCALCIFEROL, ASCORBIC ACID, FOLIC ACID, THIAMINE HYDROCHLORIDE, RETINOL, RIBOFLAVIN, NICOTINAMIDE, PANTHENOL) [Concomitant]
  8. POMALYST [Suspect]
     Active Substance: POMALIDOMIDE
     Indication: PLASMA CELL MYELOMA
     Route: 048
     Dates: start: 20140324
  9. DEXAMETHASONE (DEXAMETHASONE) [Concomitant]
     Active Substance: DEXAMETHASONE
  10. OXYCONTIN [Concomitant]
     Active Substance: OXYCODONE HYDROCHLORIDE
  11. AMLODIPINE (AMODIPINE) [Concomitant]
  12. ZOLENDRONATE (ZOLEDRONIC ACID) [Concomitant]
  13. VITAMIN D3 [Concomitant]
     Active Substance: CHOLECALCIFEROL

REACTIONS (1)
  - Deep vein thrombosis [None]

NARRATIVE: CASE EVENT DATE: 20141022
